FAERS Safety Report 12776439 (Version 1)
Quarter: 2016Q3

REPORT INFORMATION
  Report Type: Report from Study
  Country: CA (occurrence: CA)
  Receive Date: 20160923
  Receipt Date: 20160923
  Transmission Date: 20161109
  Serious: Yes (Other)
  Sender: FDA-Public Use
  Company Number: CA-REGENERON PHARMACEUTICALS, INC.-2016-21856

PATIENT

DRUGS (1)
  1. EYLEA [Suspect]
     Active Substance: AFLIBERCEPT
     Indication: RETINAL VEIN OCCLUSION
     Dosage: 1 DF, Q4WK
     Route: 031

REACTIONS (4)
  - Asthenia [Unknown]
  - Blindness [Unknown]
  - Feeling abnormal [Unknown]
  - Fatigue [Unknown]
